FAERS Safety Report 25432300 (Version 2)
Quarter: 2025Q2

REPORT INFORMATION
  Report Type: Spontaneous
  Country: US (occurrence: US)
  Receive Date: 20250613
  Receipt Date: 20250626
  Transmission Date: 20250717
  Serious: Yes (Other)
  Sender: AMGEN
  Company Number: US-AMGEN-USASP2025114081

PATIENT
  Age: 79 Year
  Sex: Female

DRUGS (1)
  1. REPATHA [Suspect]
     Active Substance: EVOLOCUMAB
     Indication: Product used for unknown indication
     Dosage: 140 MILLIGRAM, Q2WK
     Route: 065

REACTIONS (4)
  - Neoplasm malignant [Unknown]
  - Lymphadenopathy [Unknown]
  - Device difficult to use [Unknown]
  - Injection site pain [Unknown]

NARRATIVE: CASE EVENT DATE: 20250601
